FAERS Safety Report 8048910-0 (Version None)
Quarter: 2012Q1

REPORT INFORMATION
  Report Type: 
  Country: None (occurrence: None)
  Receive Date: 20120117
  Receipt Date: 20120110
  Transmission Date: 20120608
  Serious: Yes (Other)
  Sender: FDA-Public Use
  Company Number: AU-BAXTER-2012BH001172

PATIENT
  Age: 6 Year
  Sex: Male

DRUGS (6)
  1. FEIBA [Suspect]
     Indication: MOUTH HAEMORRHAGE
     Route: 042
  2. FEIBA [Suspect]
     Route: 042
  3. FACTOR VIIA, RECOMBINANT [Suspect]
     Indication: MOUTH HAEMORRHAGE
     Route: 042
  4. FEIBA [Suspect]
     Indication: HAEMARTHROSIS
     Route: 042
  5. FEIBA [Suspect]
     Route: 042
  6. FACTOR VIIA, RECOMBINANT [Suspect]
     Indication: HAEMARTHROSIS
     Route: 042

REACTIONS (3)
  - MOUTH HAEMORRHAGE [None]
  - PULMONARY EMBOLISM [None]
  - DRUG INEFFECTIVE [None]
